FAERS Safety Report 19449734 (Version 1)
Quarter: 2021Q2

REPORT INFORMATION
  Report Type: Spontaneous
  Country: AT (occurrence: AT)
  Receive Date: 20210622
  Receipt Date: 20210622
  Transmission Date: 20210717
  Serious: Yes (Other)
  Sender: FDA-Public Use
  Company Number: NVSC2021AT135917

PATIENT
  Sex: Female

DRUGS (1)
  1. GILENYA [Suspect]
     Active Substance: FINGOLIMOD HYDROCHLORIDE
     Indication: PRODUCT USED FOR UNKNOWN INDICATION
     Dosage: EVERY 2ND DAY
     Route: 065

REACTIONS (7)
  - Liver function test increased [Recovered/Resolved]
  - Hepatobiliary disease [Recovered/Resolved]
  - Gamma-glutamyltransferase increased [Recovered/Resolved]
  - Immune system disorder [Recovered/Resolved]
  - Off label use [Recovered/Resolved]
  - Diffuse alopecia [Recovered/Resolved]
  - Vulvovaginal mycotic infection [Recovered/Resolved]

NARRATIVE: CASE EVENT DATE: 20140814
